FAERS Safety Report 4293783-5 (Version None)
Quarter: 2004Q1

REPORT INFORMATION
  Report Type: 
  Country: None (occurrence: None)
  Receive Date: 20040210
  Receipt Date: 20040130
  Transmission Date: 20041129
  Serious: Yes (Hospitalization)
  Sender: FDA-Public Use
  Company Number: 2004006317

PATIENT
  Age: 34 Year
  Sex: Male

DRUGS (6)
  1. VIRACEPT [Suspect]
     Indication: HIV INFECTION
     Dosage: (BID), ORAL
     Route: 048
     Dates: start: 19980101
  2. ZIDOVUDINE [Suspect]
     Indication: HIV INFECTION
     Dosage: (DAILY), ORAL
     Route: 048
     Dates: start: 19980101
  3. LAMIVUDINE (LAMIVUDINE) [Suspect]
     Indication: HIV INFECTION
     Dosage: (BID), ORAL
     Route: 048
     Dates: start: 19980101
  4. FAMOTIDINE [Concomitant]
  5. ZOPICLONE (ZOPICLONE) [Concomitant]
  6. ETIZOLAM (ETIZOLAM) [Concomitant]

REACTIONS (5)
  - AFFECT LABILITY [None]
  - AIDS ENCEPHALOPATHY [None]
  - HEAD BANGING [None]
  - LEGAL PROBLEM [None]
  - SOCIAL PROBLEM [None]
